FAERS Safety Report 8850282 (Version 1)
Quarter: 2012Q4

REPORT INFORMATION
  Report Type: 
  Country: IT (occurrence: IT)
  Receive Date: 20121019
  Receipt Date: 20121019
  Transmission Date: 20130627
  Serious: Yes (Hospitalization)
  Sender: FDA-Public Use
  Company Number: IT-ROCHE-1143985

PATIENT
  Age: 91 Year
  Sex: Female

DRUGS (17)
  1. ROCEFIN [Suspect]
     Indication: PYREXIA
     Route: 030
     Dates: start: 20120920, end: 20120920
  2. LANSOPRAZOLE [Concomitant]
  3. FOLIC ACID [Concomitant]
  4. LOBIVON [Concomitant]
  5. LANOXIN [Concomitant]
  6. GABAPENTIN [Concomitant]
  7. ZYLORIC [Concomitant]
  8. DAPAROX [Concomitant]
  9. RIVOTRIL [Concomitant]
  10. TRIATEC [Concomitant]
  11. LASIX [Concomitant]
  12. NORVASC [Concomitant]
  13. SERENASE [Concomitant]
  14. NOVORAPID [Concomitant]
  15. LANTUS [Concomitant]
  16. LUVION [Concomitant]
  17. NITRAKET [Concomitant]

REACTIONS (2)
  - Palmar-plantar erythrodysaesthesia syndrome [Unknown]
  - Pruritus generalised [Unknown]
